FAERS Safety Report 17026223 (Version 1)
Quarter: 2019Q4

REPORT INFORMATION
  Report Type: Report from Study
  Country: CA (occurrence: CA)
  Receive Date: 20191113
  Receipt Date: 20191113
  Transmission Date: 20200122
  Serious: Yes (Other)
  Sender: FDA-Public Use
  Company Number: CA-PFIZER INC-2019484428

PATIENT
  Age: 37 Year
  Sex: Female

DRUGS (11)
  1. TRAMACET [Concomitant]
     Active Substance: ACETAMINOPHEN\TRAMADOL
  2. COSENTYX [Suspect]
     Active Substance: SECUKINUMAB
     Indication: ANKYLOSING SPONDYLITIS
     Dosage: 300 MG, MONTHLY
  3. COSENTYX [Suspect]
     Active Substance: SECUKINUMAB
     Dosage: 300 MG, MONTHLY
     Route: 058
  4. HUMIRA [Concomitant]
     Active Substance: ADALIMUMAB
     Dosage: UNK
  5. NAPROXEN. [Concomitant]
     Active Substance: NAPROXEN
     Dosage: 500 MG, 2X/DAY
  6. METHOTREXATE SODIUM. [Suspect]
     Active Substance: METHOTREXATE SODIUM
  7. COSENTYX [Suspect]
     Active Substance: SECUKINUMAB
     Dosage: 150 MG, WEEKLY
     Route: 058
  8. FLUNARIZINE [Concomitant]
     Active Substance: FLUNARIZINE
  9. ENBREL [Concomitant]
     Active Substance: ETANERCEPT
     Dosage: UNK
  10. NABILONE [Concomitant]
     Active Substance: NABILONE
  11. KETOROLAC [Concomitant]
     Active Substance: KETOROLAC TROMETHAMINE

REACTIONS (15)
  - Drug ineffective [Recovering/Resolving]
  - Therapeutic response decreased [Recovering/Resolving]
  - Incorrect dose administered [Recovering/Resolving]
  - Product administration error [Recovering/Resolving]
  - Therapeutic response shortened [Recovering/Resolving]
  - Erythema [Recovering/Resolving]
  - Joint swelling [Recovering/Resolving]
  - Diarrhoea [Recovering/Resolving]
  - Device issue [Recovering/Resolving]
  - Haematemesis [Recovering/Resolving]
  - Pain [Recovering/Resolving]
  - Injection site pain [Recovering/Resolving]
  - Nasopharyngitis [Recovering/Resolving]
  - Swelling [Recovering/Resolving]
  - Tenderness [Recovering/Resolving]
